FAERS Safety Report 25874698 (Version 1)
Quarter: 2025Q4

REPORT INFORMATION
  Report Type: Spontaneous
  Country: EU (occurrence: EU)
  Receive Date: 20251002
  Receipt Date: 20251002
  Transmission Date: 20260119
  Serious: Yes (Hospitalization)
  Sender: TEVA
  Company Number: None

PATIENT
  Age: 73 Year
  Sex: Female
  Weight: 55 kg

DRUGS (3)
  1. PACLITAXEL [Suspect]
     Active Substance: PACLITAXEL
     Indication: Breast cancer
     Dosage: TIME INTERVAL: TOTAL: 1 TREATMENT RECEIVED 114MG
     Route: 042
     Dates: start: 20250806, end: 20250806
  2. TRASTUZUMAB [Suspect]
     Active Substance: TRASTUZUMAB
     Indication: Breast cancer
     Dosage: 2 CURES RECEIVED, TRASTUZUMAB ((MAMMIFERE/HAMSTER/CELLULES CHO))
     Route: 058
     Dates: start: 20250716, end: 20250806
  3. DOCETAXEL [Suspect]
     Active Substance: DOCETAXEL
     Indication: Breast cancer
     Dosage: TIME INTERVAL: TOTAL: 1 TREATMENT RECEIVED 172MG
     Route: 042
     Dates: start: 20250716, end: 20250716

REACTIONS (1)
  - Interstitial lung disease [Recovering/Resolving]

NARRATIVE: CASE EVENT DATE: 20250821
